FAERS Safety Report 6811486-7 (Version None)
Quarter: 2010Q2

REPORT INFORMATION
  Report Type: 
  Country: None (occurrence: None)
  Receive Date: 20100629
  Receipt Date: 20100629
  Transmission Date: 20101027
  Serious: Yes (Other)
  Sender: FDA-Public Use
  Company Number: None

PATIENT
  Age: 56 Year
  Sex: Female
  Weight: 47.1741 kg

DRUGS (1)
  1. BONIVA [Suspect]
     Indication: OSTEOPOROSIS
     Dosage: 150 MG 1 TAB / MONTH PO
     Route: 048
     Dates: start: 20100621, end: 20100621

REACTIONS (23)
  - ABDOMINAL PAIN UPPER [None]
  - ARRHYTHMIA [None]
  - ARTHRALGIA [None]
  - BACK PAIN [None]
  - BONE PAIN [None]
  - CHEST PAIN [None]
  - DIARRHOEA [None]
  - DYSPEPSIA [None]
  - DYSPNOEA [None]
  - GALLBLADDER DISORDER [None]
  - GASTROOESOPHAGEAL REFLUX DISEASE [None]
  - HEART RATE INCREASED [None]
  - HYPOVENTILATION [None]
  - INSOMNIA [None]
  - LETHARGY [None]
  - MALAISE [None]
  - MUSCULOSKELETAL CHEST PAIN [None]
  - MUSCULOSKELETAL STIFFNESS [None]
  - NECK PAIN [None]
  - ORAL DISORDER [None]
  - PAIN IN EXTREMITY [None]
  - SKELETAL INJURY [None]
  - WEIGHT DECREASED [None]
